FAERS Safety Report 10230852 (Version 1)
Quarter: 2014Q2

REPORT INFORMATION
  Report Type: Spontaneous
  Country: US (occurrence: US)
  Receive Date: 20140611
  Receipt Date: 20140611
  Transmission Date: 20141212
  Serious: No
  Sender: FDA-Public Use
  Company Number: US-BAYER-2014-080471

PATIENT
  Age: 42 Year
  Sex: Male

DRUGS (3)
  1. MAGNEVIST [Suspect]
     Indication: NUCLEAR MAGNETIC RESONANCE IMAGING
     Dosage: 15 ML, ONCE
     Dates: start: 20140506, end: 20140506
  2. MAGNEVIST [Suspect]
     Indication: SPINAL FUSION SURGERY
  3. MAGNEVIST [Suspect]
     Indication: BACK PAIN

REACTIONS (2)
  - Pruritus [Recovering/Resolving]
  - Nausea [Recovered/Resolved]
